FAERS Safety Report 19410266 (Version 1)
Quarter: 2021Q2

REPORT INFORMATION
  Report Type: Spontaneous
  Country: DE (occurrence: DE)
  Receive Date: 20210614
  Receipt Date: 20210614
  Transmission Date: 20210717
  Serious: Yes (Hospitalization, Other)
  Sender: FDA-Public Use
  Company Number: DE-DEXPHARM-20210781

PATIENT
  Age: 66 Year
  Sex: Female

DRUGS (12)
  1. CANDECOR 8 MG TABLETTEN [Concomitant]
     Dosage: 8 MG, 1?0?1?0, TABLET
  2. EISEN(II) [Concomitant]
     Dosage: 100 MG, 1?0?0?0, CAPSULE
  3. EDOXABAN [Suspect]
     Active Substance: EDOXABAN TOSYLATE
     Dosage: 60 MG, 1?0?0?0, TABLET
  4. ALLOPURINOL. [Concomitant]
     Active Substance: ALLOPURINOL
     Dosage: 300 MG, 0?0?1?0, TABLET
  5. HCT AAA 25MG [Concomitant]
     Dosage: 25 MG, 1?0?0?0, TABLET
  6. LEVOTHYROXINE SODIUM. [Concomitant]
     Active Substance: LEVOTHYROXINE SODIUM
     Dosage: 0.112 MG, 1?0?0?0, TABLET
  7. VENLAFAXIN PROLONGED?RELEASE CAPSULE [Suspect]
     Active Substance: VENLAFAXINE HYDROCHLORIDE
     Dosage: 150 MG, 0?0?1?0, RETARD CAPSULES
  8. METOPROLOL. [Concomitant]
     Active Substance: METOPROLOL
     Dosage: 95 MG, 1?0?1?0, DELAY?TABLET
  9. BENSERAZIDE/LEVODOPA [Concomitant]
     Active Substance: BENSERAZIDE\LEVODOPA
     Dosage: 25|100 MG, 0?0?1?0, TABLETTEN
  10. MIRTAZAPIN [Suspect]
     Active Substance: MIRTAZAPINE
     Dosage: 15 MG, 0?0?1?0, TABLET
  11. PREGABALIN. [Concomitant]
     Active Substance: PREGABALIN
     Dosage: 150 MG, 1?0?1?0, CAPSULE
  12. PANTOPRAZO [Concomitant]
     Dosage: 20 MG, 1?0?0?0, TABLET

REACTIONS (5)
  - Dyspepsia [Unknown]
  - Abdominal pain [Unknown]
  - Atrial fibrillation [Unknown]
  - Nausea [Unknown]
  - Diarrhoea [Unknown]
